FAERS Safety Report 19476797 (Version 3)
Quarter: 2021Q3

REPORT INFORMATION
  Report Type: Spontaneous
  Country: JP (occurrence: JP)
  Receive Date: 20210630
  Receipt Date: 20210716
  Transmission Date: 20211014
  Serious: Yes (Life-Threatening, Hospitalization)
  Sender: FDA-Public Use
  Company Number: JP-ASTRAZENECA-2021A558017

PATIENT
  Age: 68 Year
  Sex: Male
  Weight: 49 kg

DRUGS (13)
  1. GLIMEPIRIDE. [Suspect]
     Active Substance: GLIMEPIRIDE
     Route: 048
     Dates: start: 20210609
  2. TAKECAB [Suspect]
     Active Substance: VONOPRAZAN FUMARATE
     Route: 048
     Dates: start: 20210609
  3. METGLUCO [Suspect]
     Active Substance: METFORMIN HYDROCHLORIDE
     Route: 048
     Dates: start: 20210609
  4. BELSOMRA [Suspect]
     Active Substance: SUVOREXANT
     Route: 048
     Dates: start: 20210609
  5. ETOPOSIDE. [Suspect]
     Active Substance: ETOPOSIDE
     Indication: SMALL CELL LUNG CANCER
     Dosage: 150.0MG UNKNOWN
     Route: 065
     Dates: start: 20210330
  6. ALLOPURINOL. [Suspect]
     Active Substance: ALLOPURINOL
     Route: 048
     Dates: start: 20210609
  7. E KEPPRA [Suspect]
     Active Substance: LEVETIRACETAM
     Route: 048
     Dates: start: 20210609
  8. ISOBIDE [Suspect]
     Active Substance: ISOSORBIDE
     Route: 048
     Dates: start: 20210609
  9. ETOPOSIDE. [Suspect]
     Active Substance: ETOPOSIDE
     Indication: SMALL CELL LUNG CANCER
     Dosage: 120.0MG UNKNOWN
     Route: 065
     Dates: start: 20210420
  10. G?LASTA [Concomitant]
     Active Substance: PEGFILGRASTIM
     Dosage: DOSE UNKNOWN, ON DAY 4 OF EACH COURSE (EXCEPT THE 1ST COURSE)
     Route: 065
  11. IMFINZI [Suspect]
     Active Substance: DURVALUMAB
     Indication: SMALL CELL LUNG CANCER
     Route: 042
     Dates: start: 20210420, end: 20210601
  12. CISPLATIN. [Suspect]
     Active Substance: CISPLATIN
     Indication: SMALL CELL LUNG CANCER
     Route: 065
     Dates: start: 20210330, end: 20210601
  13. VOGLIBOSE OD [Suspect]
     Active Substance: VOGLIBOSE
     Route: 048
     Dates: start: 20210609

REACTIONS (1)
  - Stevens-Johnson syndrome [Recovering/Resolving]

NARRATIVE: CASE EVENT DATE: 20210616
